FAERS Safety Report 24562360 (Version 1)
Quarter: 2024Q4

REPORT INFORMATION
  Report Type: Spontaneous
  Country: AU (occurrence: AU)
  Receive Date: 20241029
  Receipt Date: 20241029
  Transmission Date: 20250115
  Serious: Yes (Hospitalization, Other)
  Sender: MERCK
  Company Number: AU-009507513-2410AUS011424

PATIENT
  Age: 67 Year
  Sex: Female

DRUGS (26)
  1. PEMBROLIZUMAB [Suspect]
     Active Substance: PEMBROLIZUMAB
     Indication: Non-small cell lung cancer metastatic
     Dosage: 200 MILLIGRAM, Q3W
     Route: 042
     Dates: start: 20240529
  2. DIVARASIB [Suspect]
     Active Substance: DIVARASIB
     Indication: Non-small cell lung cancer metastatic
     Dosage: 200 MILLIGRAM; INTERVAL:1 DAY
     Route: 048
     Dates: start: 20240529
  3. CARBOPLATIN [Suspect]
     Active Substance: CARBOPLATIN
     Indication: Non-small cell lung cancer metastatic
     Dosage: 470 MILLIGRAM, Q3W
     Route: 042
     Dates: start: 20240529
  4. PEMETREXED [Suspect]
     Active Substance: PEMETREXED
     Indication: Non-small cell lung cancer metastatic
     Dosage: 845 MILLIGRAM, Q3W
     Route: 042
     Dates: start: 20240529
  5. LORATADINE [Concomitant]
     Active Substance: LORATADINE
     Indication: Rash
     Dosage: 10 MILLIGRAM, INTERVAL: 1 AS NECESSARY
     Route: 048
     Dates: start: 20240605
  6. DEXTROSE [Concomitant]
     Active Substance: DEXTROSE MONOHYDRATE
     Indication: Hypoglycaemia
     Dosage: UNK
     Route: 042
  7. MAXOLON [Concomitant]
     Active Substance: METOCLOPRAMIDE HYDROCHLORIDE
     Indication: Nausea
     Dosage: 10 MILLIGRAM
     Route: 048
     Dates: start: 20240603
  8. CHOLECALCIFEROL [Concomitant]
     Active Substance: CHOLECALCIFEROL
     Dosage: 1000 MICROGRAM, QD
     Route: 048
     Dates: start: 20230101
  9. VITAMIN B12 [Concomitant]
     Active Substance: CYANOCOBALAMIN
     Dosage: 1000 MICROGRAM, INTERVAL: 1 AS NECESSARY; FORMULATION: LIQUID
     Route: 030
  10. DEXAMETHASONE [Concomitant]
     Active Substance: DEXAMETHASONE
     Indication: Vomiting
     Dosage: 8 MILLIGRAM; FORMULATION: TABLET
     Route: 048
     Dates: start: 20240528
  11. DEXAMETHASONE [Concomitant]
     Active Substance: DEXAMETHASONE
     Indication: Nausea
     Dosage: 10 MILLIGRAM; FREQ: 1 AS NECESSARY; FORMULATION: CAPSULE
     Route: 048
     Dates: start: 20240603
  12. DOCUSATE SODIUM [Concomitant]
     Active Substance: DOCUSATE SODIUM
     Indication: Constipation
     Dosage: 50 MILLIGRAM, QD
     Route: 048
     Dates: start: 20240716, end: 20240723
  13. FOLIC ACID [Concomitant]
     Active Substance: FOLIC ACID
     Dosage: 0.5 MILLIGRAM, QD
     Route: 048
     Dates: start: 20240522
  14. NITROGLYCERIN [Concomitant]
     Active Substance: NITROGLYCERIN
     Dosage: UNK
     Dates: start: 20240812
  15. IBUPROFEN [Concomitant]
     Active Substance: IBUPROFEN
     Indication: Analgesic therapy
     Dosage: 400 MILLIGRAM
     Route: 048
     Dates: start: 20240719
  16. ILOPROST [Concomitant]
     Active Substance: ILOPROST
     Indication: Raynaud^s phenomenon
  17. OXYCODONE [Concomitant]
     Active Substance: OXYCODONE
     Indication: Analgesic therapy
     Dosage: 5 MILLIGRAM
     Route: 048
     Dates: start: 20240719
  18. PALONOSETRON [Concomitant]
     Active Substance: PALONOSETRON
     Dosage: 500 MICROGRAM, Q3W
     Route: 048
     Dates: start: 20240529
  19. ACETAMINOPHEN [Concomitant]
     Active Substance: ACETAMINOPHEN
     Indication: Analgesic therapy
     Dosage: 1 GRAM
     Route: 048
     Dates: start: 20240719
  20. PREDNEFRIN FORTE [PREDNISOLONE ACETATE] [Concomitant]
     Indication: Uveitis
     Dosage: 1 PERCENT; FREQ: 1 AS NECESSARY
     Route: 047
     Dates: start: 20230301
  21. PREDNISOLONE [Concomitant]
     Active Substance: PREDNISOLONE
     Indication: Raynaud^s phenomenon
  22. PREDNISONE [Concomitant]
     Active Substance: PREDNISONE
     Dosage: 20 MILLIGRAM
     Dates: start: 20240813
  23. FELODIPINE [Concomitant]
     Active Substance: FELODIPINE
  24. NETUPITANT [Concomitant]
     Active Substance: NETUPITANT
  25. PANTOPRAZOLE [Concomitant]
     Active Substance: PANTOPRAZOLE
  26. LOPERAMIDE [Concomitant]
     Active Substance: LOPERAMIDE

REACTIONS (1)
  - Raynaud^s phenomenon [Not Recovered/Not Resolved]

NARRATIVE: CASE EVENT DATE: 20240719
